FAERS Safety Report 9613098 (Version 1)
Quarter: 2013Q4

REPORT INFORMATION
  Report Type: Spontaneous
  Country: US (occurrence: US)
  Receive Date: 20131010
  Receipt Date: 20131010
  Transmission Date: 20140711
  Serious: Yes (Hospitalization)
  Sender: FDA-Public Use
  Company Number: US-ENDO PHARMACEUTICALS INC.-PERC20130129

PATIENT
  Sex: Female

DRUGS (2)
  1. PERCOCET [Suspect]
     Indication: PAIN
     Dosage: 5/325 MG
     Route: 048
     Dates: start: 201109
  2. PHENERGAN [Concomitant]
     Indication: NAUSEA
     Dosage: UNKNOWN
     Route: 042

REACTIONS (2)
  - Hospitalisation [Unknown]
  - Therapeutic response unexpected [Not Recovered/Not Resolved]
